FAERS Safety Report 17900698 (Version 1)
Quarter: 2020Q2

REPORT INFORMATION
  Report Type: Report from Study
  Country: US (occurrence: US)
  Receive Date: 20200616
  Receipt Date: 20200616
  Transmission Date: 20200714
  Serious: Yes (Other)
  Sender: FDA-Public Use
  Company Number: US-TEVA-2020-US-1247626

PATIENT
  Sex: Female

DRUGS (2)
  1. COPAXONE [Suspect]
     Active Substance: GLATIRAMER ACETATE
     Dosage: FORM STRENGTH: UNKNOWN
  2. AVONEX [Suspect]
     Active Substance: INTERFERON BETA-1A
     Route: 065

REACTIONS (21)
  - Swelling face [Unknown]
  - Abdominal distension [Unknown]
  - Dizziness [Unknown]
  - Sinus pain [Unknown]
  - Constipation [Unknown]
  - Salivary gland calculus [Unknown]
  - Optic neuritis [Not Recovered/Not Resolved]
  - Visual impairment [Unknown]
  - Fine motor skill dysfunction [Unknown]
  - Paranasal sinus discomfort [Unknown]
  - Nasal operation [Unknown]
  - Speech disorder [Unknown]
  - Hypoaesthesia [Unknown]
  - Decreased vibratory sense [Unknown]
  - Hypothyroidism [Unknown]
  - Influenza like illness [Unknown]
  - Asthenia [Unknown]
  - Injection site necrosis [Unknown]
  - Headache [Unknown]
  - Sensory loss [Unknown]
  - Gait disturbance [Unknown]
